FAERS Safety Report 5005273-2 (Version None)
Quarter: 2006Q2

REPORT INFORMATION
  Report Type: 
  Country: None (occurrence: None)
  Receive Date: 20060518
  Receipt Date: 20060515
  Transmission Date: 20061013
  Serious: Yes (Life-Threatening)
  Sender: FDA-Public Use
  Company Number: BR-GLAXOSMITHKLINE-A0605917A

PATIENT
  Age: 2 Year
  Sex: Male
  Weight: 11.2 kg

DRUGS (1)
  1. AMOXIL [Suspect]
     Indication: PHARYNGITIS
     Dosage: 5ML UNKNOWN
     Route: 048
     Dates: start: 20060508, end: 20060510

REACTIONS (5)
  - ANOREXIA [None]
  - BREATH ODOUR [None]
  - DIARRHOEA [None]
  - PALLOR [None]
  - POOR QUALITY DRUG ADMINISTERED [None]
